FAERS Safety Report 7262835-X (Version None)
Quarter: 2011Q1

REPORT INFORMATION
  Report Type: 
  Country: None (occurrence: None)
  Receive Date: 20110130
  Receipt Date: 20100920
  Transmission Date: 20110831
  Serious: No
  Sender: FDA-Public Use
  Company Number: US-ABBOTT-10P-163-0667900-00

PATIENT
  Sex: Female

DRUGS (2)
  1. HUMIRA [Suspect]
     Indication: ANKYLOSING SPONDYLITIS
     Dates: start: 20100501
  2. LEVOTHYROXINE SODIUM [Concomitant]
     Indication: PRODUCT USED FOR UNKNOWN INDICATION

REACTIONS (6)
  - INCORRECT DOSE ADMINISTERED [None]
  - PAIN IN EXTREMITY [None]
  - INJECTION SITE EXTRAVASATION [None]
  - WRONG TECHNIQUE IN DRUG USAGE PROCESS [None]
  - DEVICE MALFUNCTION [None]
  - INJECTION SITE MACULE [None]
